FAERS Safety Report 9818325 (Version 1)
Quarter: 2014Q1

REPORT INFORMATION
  Report Type: Spontaneous
  Country: US (occurrence: US)
  Receive Date: 20140115
  Receipt Date: 20140115
  Transmission Date: 20141002
  Serious: No
  Sender: FDA-Public Use
  Company Number: US-PFIZER INC-2014009806

PATIENT
  Sex: Female

DRUGS (3)
  1. CELEBREX [Suspect]
     Dosage: UNK
  2. LYRICA [Suspect]
     Dosage: UNK
  3. EFFEXOR XR [Suspect]
     Dosage: UNK

REACTIONS (9)
  - Fatigue [Unknown]
  - Pain [Unknown]
  - Hernia [Unknown]
  - Fibromyalgia [Unknown]
  - Dysstasia [Unknown]
  - Back pain [Unknown]
  - Heart rate increased [Unknown]
  - Muscle twitching [Unknown]
  - Memory impairment [Unknown]
